FAERS Safety Report 24416584 (Version 2)
Quarter: 2025Q1

REPORT INFORMATION
  Report Type: Spontaneous
  Country: US (occurrence: US)
  Receive Date: 20241009
  Receipt Date: 20250110
  Transmission Date: 20250408
  Serious: No
  Sender: PAREXEL
  Company Number: US-NOVEN PHARMACEUTICALS, INC.-2024-NOV-US001192

PATIENT
  Age: 21 Year
  Sex: Male

DRUGS (2)
  1. XELSTRYM [Suspect]
     Active Substance: DEXTROAMPHETAMINE
     Indication: Somnolence
     Route: 062
     Dates: start: 20240913
  2. XELSTRYM [Suspect]
     Active Substance: DEXTROAMPHETAMINE
     Indication: Off label use

REACTIONS (5)
  - Application site pruritus [Recovering/Resolving]
  - Application site rash [Not Recovered/Not Resolved]
  - Application site pain [Recovering/Resolving]
  - Product adhesion issue [Not Recovered/Not Resolved]
  - Off label use [Not Recovered/Not Resolved]

NARRATIVE: CASE EVENT DATE: 20240913
